FAERS Safety Report 11751669 (Version 2)
Quarter: 2016Q4

REPORT INFORMATION
  Report Type: Spontaneous
  Country: US (occurrence: US)
  Receive Date: 20151118
  Receipt Date: 20161006
  Transmission Date: 20170206
  Serious: Yes (Hospitalization, Other)
  Sender: FDA-Public Use
  Company Number: US-ASTRAZENECA-2015SF10596

PATIENT
  Age: 45 Year
  Sex: Female
  Weight: 75.8 kg

DRUGS (32)
  1. NEXIUM [Suspect]
     Active Substance: ESOMEPRAZOLE MAGNESIUM
     Indication: GASTROOESOPHAGEAL REFLUX DISEASE
     Route: 048
     Dates: start: 2013
  2. CELEBREX [Concomitant]
     Active Substance: CELECOXIB
     Indication: NEURALGIA
     Route: 048
     Dates: start: 2009
  3. TRAZODONE [Concomitant]
     Active Substance: TRAZODONE HYDROCHLORIDE
     Indication: ANTIDEPRESSANT THERAPY
     Route: 048
     Dates: start: 2007
  4. SERTRALINE [Concomitant]
     Active Substance: SERTRALINE HYDROCHLORIDE
     Indication: ANTIDEPRESSANT THERAPY
     Route: 048
     Dates: start: 2007
  5. PRILOSEC [Suspect]
     Active Substance: OMEPRAZOLE MAGNESIUM
     Indication: GASTROOESOPHAGEAL REFLUX DISEASE
     Route: 048
     Dates: start: 2005, end: 2013
  6. CRESTOR [Suspect]
     Active Substance: ROSUVASTATIN CALCIUM
     Indication: BLOOD CHOLESTEROL INCREASED
     Dosage: DAILY
     Route: 048
     Dates: start: 201508, end: 201509
  7. MS CONTIN [Concomitant]
     Active Substance: MORPHINE SULFATE
     Indication: PAIN
     Route: 048
     Dates: start: 201506
  8. BABY ASPIRIN [Concomitant]
     Active Substance: ASPIRIN
     Indication: CARDIOVASCULAR EVENT PROPHYLAXIS
     Route: 048
     Dates: start: 20131208
  9. TRAZODONE [Concomitant]
     Active Substance: TRAZODONE HYDROCHLORIDE
     Indication: SLEEP DISORDER
     Route: 048
     Dates: start: 2007
  10. NEXIUM [Suspect]
     Active Substance: ESOMEPRAZOLE MAGNESIUM
     Indication: GASTROOESOPHAGEAL REFLUX DISEASE
     Dosage: GENERIC ESOPMEPRAZOLE; 40 MG DAILY
     Route: 048
  11. NORCO [Concomitant]
     Active Substance: ACETAMINOPHEN\HYDROCODONE BITARTRATE
     Indication: PAIN
     Dosage: UNKNOWN
     Route: 065
  12. DILAUDID [Concomitant]
     Active Substance: HYDROMORPHONE HYDROCHLORIDE
     Indication: BREAKTHROUGH PAIN
     Dosage: 4 MG THREE TIMES DAILY AS NEEDED
     Route: 048
     Dates: start: 201506
  13. NITROGLYCERIN. [Concomitant]
     Active Substance: NITROGLYCERIN
     Indication: CHEST PAIN
     Dosage: 0.4MG AS REQUIRED
     Route: 060
     Dates: start: 2007
  14. LYRICA [Concomitant]
     Active Substance: PREGABALIN
     Dosage: UNKNOWN
     Route: 065
  15. IRRITABLE BOWEL SYNDROME THERAPY OVER THE COUNTER [Concomitant]
     Indication: IRRITABLE BOWEL SYNDROME
     Dosage: 1 DF BEFORE MEALS
     Route: 060
  16. CREON [Concomitant]
     Active Substance: PANCRELIPASE AMYLASE\PANCRELIPASE LIPASE\PANCRELIPASE PROTEASE
     Indication: CATABOLIC STATE
     Route: 048
     Dates: start: 201406
  17. CELEBREX [Concomitant]
     Active Substance: CELECOXIB
     Indication: PAIN
     Route: 048
     Dates: start: 2009
  18. KLONOPIN [Concomitant]
     Active Substance: CLONAZEPAM
     Indication: ANXIETY
     Route: 048
     Dates: start: 2005, end: 2011
  19. SYNTHROID [Concomitant]
     Active Substance: LEVOTHYROXINE SODIUM
     Indication: HYPERTHYROIDISM
     Route: 048
     Dates: start: 201402
  20. KLONOPIN [Concomitant]
     Active Substance: CLONAZEPAM
     Indication: ANXIETY
     Route: 048
     Dates: start: 2011
  21. LACTULOSE. [Concomitant]
     Active Substance: LACTULOSE
     Indication: CONSTIPATION
     Dosage: 10GM/15ML 4 TABLESPOONS FOUR TIMES DAILY AS REQUIRED
     Route: 048
     Dates: start: 2005, end: 2012
  22. COLACE [Concomitant]
     Active Substance: DOCUSATE SODIUM
     Indication: LAXATIVE SUPPORTIVE CARE
     Route: 048
     Dates: start: 2007
  23. ORPHENADRINE [Concomitant]
     Active Substance: ORPHENADRINE
     Indication: NERVE INJURY
     Route: 048
     Dates: start: 2009
  24. GABAPENTIN. [Concomitant]
     Active Substance: GABAPENTIN
     Indication: NEURALGIA
     Dates: start: 2009
  25. MIDOL [Concomitant]
     Active Substance: IBUPROFEN
     Indication: PAIN
     Dosage: 2 PILLS THREE TIMES A DAY
     Route: 048
  26. LACTULOSE. [Concomitant]
     Active Substance: LACTULOSE
     Indication: BOWEL MOVEMENT IRREGULARITY
     Dosage: 10GM/15ML 4 TABLESPOONS FOUR TIMES DAILY AS REQUIRED
     Route: 048
     Dates: start: 2005, end: 2012
  27. LACTASE ENZYME SUPPLEMENT DAIRY RELIEF [Concomitant]
     Indication: LACTOSE INTOLERANCE
     Dosage: 1 DF ER THE FIRST BITE OF A DAIRY PRODUCT AS REQUIRED
     Route: 048
     Dates: start: 201506
  28. LACTASE ENZYME SUPPLEMENT DAIRY RELIEF [Concomitant]
     Indication: GLUTEN SENSITIVITY
     Dosage: 1 DF ER THE FIRST BITE OF A DAIRY PRODUCT AS REQUIRED
     Route: 048
     Dates: start: 201506
  29. MOVANTIK [Suspect]
     Active Substance: NALOXEGOL OXALATE
     Indication: CONSTIPATION
     Route: 048
     Dates: start: 20151028
  30. LINZESS [Suspect]
     Active Substance: LINACLOTIDE
     Indication: IRRITABLE BOWEL SYNDROME
     Route: 048
     Dates: start: 20151108
  31. HYDROCODONE [Concomitant]
     Active Substance: HYDROCODONE
     Indication: BREAKTHROUGH PAIN
     Dosage: 10/1000MG AS REQUIRED
     Route: 065
     Dates: end: 2015
  32. AMITIZA [Concomitant]
     Active Substance: LUBIPROSTONE
     Indication: CONSTIPATION

REACTIONS (33)
  - Dermoid cyst [Unknown]
  - Arthritis [Unknown]
  - Pain in jaw [Unknown]
  - Gluten sensitivity [Unknown]
  - Infrequent bowel movements [Recovered/Resolved]
  - Peripheral arterial occlusive disease [Unknown]
  - Back disorder [Unknown]
  - Pain [Not Recovered/Not Resolved]
  - Chronic obstructive pulmonary disease [Unknown]
  - Hyperthyroidism [Unknown]
  - Pancreatic necrosis [Unknown]
  - Gastric dilatation [Unknown]
  - Gastrooesophageal sphincter insufficiency [Unknown]
  - Abortion spontaneous [Unknown]
  - Diabetes mellitus [Unknown]
  - Neuropathy peripheral [Unknown]
  - Scar [Unknown]
  - Weight increased [Unknown]
  - Haemorrhage [Unknown]
  - Emphysema [Unknown]
  - Chest pain [Unknown]
  - Pancreatitis [Unknown]
  - Intestinal obstruction [Unknown]
  - Osteoporosis [Unknown]
  - Contusion [Unknown]
  - Malaise [Unknown]
  - Diarrhoea [Unknown]
  - Off label use [Recovered/Resolved]
  - Exposure during pregnancy [Unknown]
  - Postoperative adhesion [Unknown]
  - Visual acuity reduced [Unknown]
  - Abdominal pain [Unknown]
  - Lactose intolerance [Unknown]

NARRATIVE: CASE EVENT DATE: 2005
